FAERS Safety Report 17336546 (Version 1)
Quarter: 2020Q1

REPORT INFORMATION
  Report Type: Spontaneous
  Country: HU (occurrence: HU)
  Receive Date: 20200128
  Receipt Date: 20200128
  Transmission Date: 20200409
  Serious: Yes (Other)
  Sender: FDA-Public Use
  Company Number: HU-BAYER-2019-226513

PATIENT
  Sex: Male

DRUGS (4)
  1. BARACLUDE [Concomitant]
     Active Substance: ENTECAVIR
     Dosage: 1X1 TABL
  2. EPCLUSA [Concomitant]
     Active Substance: SOFOSBUVIR\VELPATASVIR
     Dosage: 1X1 TABL
  3. MODERIBA [Concomitant]
     Active Substance: RIBAVIRIN
     Dosage: 2X2 TABL
  4. NEXAVAR [Suspect]
     Active Substance: SORAFENIB
     Indication: HEPATOCELLULAR CARCINOMA
     Dosage: DAILY DOSE 160 MG(FULL DOSE)
     Dates: start: 20170317, end: 2018

REACTIONS (2)
  - Hepatocellular carcinoma [None]
  - Adverse drug reaction [None]
